FAERS Safety Report 10308284 (Version 1)
Quarter: 2014Q3

REPORT INFORMATION
  Report Type: Spontaneous
  Country: TR (occurrence: None)
  Receive Date: 20140714
  Receipt Date: 20140714
  Transmission Date: 20150326
  Serious: Yes (Hospitalization)
  Sender: FDA-Public Use
  Company Number: IPC201407-000340

PATIENT
  Age: 65 Year
  Sex: Male

DRUGS (5)
  1. LOSARTANE (LOSARTAN) (LOSARTAN) [Concomitant]
  2. ROSIGLITAZONE (ROSIGLITAZONE) [Concomitant]
  3. REPAGLINIDE (REPAGLINIDE) [Concomitant]
     Active Substance: REPAGLINIDE
  4. WARFARIN [Suspect]
     Active Substance: WARFARIN
  5. ASPIRIN. [Suspect]
     Active Substance: ASPIRIN

REACTIONS (16)
  - Retinal detachment [None]
  - Haemoglobin decreased [None]
  - Arrhythmia [None]
  - Pallor [None]
  - Haematocrit decreased [None]
  - Blood pressure diastolic increased [None]
  - Blood urea increased [None]
  - Melaena [None]
  - Atrial fibrillation [None]
  - Eye haemorrhage [None]
  - Retinal haemorrhage [None]
  - Haemorrhage [None]
  - Haematuria [None]
  - Ecchymosis [None]
  - Activated partial thromboplastin time prolonged [None]
  - Blood glucose increased [None]
